FAERS Safety Report 24901989 (Version 1)
Quarter: 2025Q1

REPORT INFORMATION
  Report Type: Spontaneous
  Country: US (occurrence: US)
  Receive Date: 20250129
  Receipt Date: 20250129
  Transmission Date: 20250409
  Serious: No
  Sender: SANOFI AVENTIS
  Company Number: US-SA-2025SA027036

PATIENT
  Age: 62 Year
  Sex: Male

DRUGS (2)
  1. DUPIXENT [Suspect]
     Active Substance: DUPILUMAB
     Indication: Nasal polyps
     Dosage: 300 MG, QOW
     Route: 058
  2. DILAUDID [Concomitant]
     Active Substance: HYDROMORPHONE HYDROCHLORIDE

REACTIONS (6)
  - Nasal congestion [Recovering/Resolving]
  - Hyposmia [Recovering/Resolving]
  - Ageusia [Recovering/Resolving]
  - Vision blurred [Unknown]
  - Asthenopia [Unknown]
  - Drug hypersensitivity [Unknown]
